FAERS Safety Report 26117611 (Version 1)
Quarter: 2025Q4

REPORT INFORMATION
  Report Type: Spontaneous
  Country: US (occurrence: US)
  Receive Date: 20251203
  Receipt Date: 20251203
  Transmission Date: 20260118
  Serious: Yes (Hospitalization, Other)
  Sender: NOVO NORDISK
  Company Number: US-NOVOPROD-1575027

PATIENT
  Age: 72 Year
  Sex: Female

DRUGS (5)
  1. INSULIN DEGLUDEC [Suspect]
     Active Substance: INSULIN DEGLUDEC
     Indication: Type 2 diabetes mellitus
     Dosage: 76 IU, QD
  2. INSULIN DEGLUDEC [Suspect]
     Active Substance: INSULIN DEGLUDEC
     Dosage: 90 IU, BID (TREATMENT)
  3. INSULIN ASPART [Suspect]
     Active Substance: INSULIN ASPART
     Dosage: 60 IU, TID (TREATMENT)
  4. INSULIN ASPART [Suspect]
     Active Substance: INSULIN ASPART
     Indication: Type 2 diabetes mellitus
     Dosage: 35 IU WITH MEALS
  5. TRULICITY [Suspect]
     Active Substance: DULAGLUTIDE
     Indication: Product used for unknown indication
     Dosage: 3 MG, QW

REACTIONS (4)
  - Insulin resistance [Unknown]
  - Acquired generalised lipodystrophy [Unknown]
  - Hyperglycaemia [Unknown]
  - Product dose omission issue [Unknown]
